FAERS Safety Report 10030389 (Version 1)
Quarter: 2014Q1

REPORT INFORMATION
  Report Type: Spontaneous
  Country: US (occurrence: US)
  Receive Date: 20140323
  Receipt Date: 20140323
  Transmission Date: 20141002
  Serious: No
  Sender: FDA-Public Use
  Company Number: US-ALLERGAN-1312343US

PATIENT
  Age: 51 Year
  Sex: Female

DRUGS (3)
  1. LATISSE 0.03% [Suspect]
     Indication: PRODUCT USED FOR UNKNOWN INDICATION
     Dosage: 1 GTT, QHS
     Route: 061
     Dates: start: 201305
  2. SYNTHROID [Concomitant]
     Indication: HYPOTHYROIDISM
     Dosage: 108 ?G, QD
     Route: 048
  3. VITAMINS                           /00067501/ [Concomitant]
     Indication: SUPPLEMENTATION THERAPY

REACTIONS (4)
  - Incorrect dose administered [Unknown]
  - Erythema of eyelid [Recovered/Resolved]
  - Eyelids pruritus [Recovered/Resolved]
  - Eyelid oedema [Recovered/Resolved]
